FAERS Safety Report 4285998-7 (Version None)
Quarter: 2004Q1

REPORT INFORMATION
  Report Type: 
  Country: None (occurrence: None)
  Receive Date: 20040120
  Receipt Date: 20030213
  Transmission Date: 20041129
  Serious: No
  Sender: FDA-Public Use
  Company Number: NSADSS2002034897

PATIENT
  Age: 44 Year
  Sex: Female
  Weight: 58.9676 kg

DRUGS (1)
  1. COPPER T MODEL TCU 380A [Suspect]
     Indication: INTRA-UTERINE CONTRACEPTIVE DEVICE INSERTION
     Dosage: INTRAUTERINE
     Route: 015
     Dates: start: 19960601, end: 20021004

REACTIONS (2)
  - IUCD COMPLICATION [None]
  - MENORRHAGIA [None]
